FAERS Safety Report 8614582-7 (Version None)
Quarter: 2012Q3

REPORT INFORMATION
  Report Type: 
  Country: None (occurrence: None)
  Receive Date: 20120823
  Receipt Date: 20120816
  Transmission Date: 20120928
  Serious: Yes (Other)
  Sender: FDA-Public Use
  Company Number: CN-ASTELLAS-2012US007084

PATIENT
  Sex: Male
  Weight: 60 kg

DRUGS (1)
  1. TARCEVA [Suspect]
     Indication: LUNG NEOPLASM MALIGNANT
     Dosage: 1 DF, UID/QD
     Route: 048
     Dates: start: 20081105, end: 20090101

REACTIONS (3)
  - PALPITATIONS [None]
  - HYPERTENSION [None]
  - FLUSHING [None]
